FAERS Safety Report 24056931 (Version 2)
Quarter: 2024Q3

REPORT INFORMATION
  Report Type: Spontaneous
  Country: JP (occurrence: JP)
  Receive Date: 20240706
  Receipt Date: 20240930
  Transmission Date: 20241016
  Serious: Yes (Death, Hospitalization, Disabling, Congenital Anomaly)
  Sender: ROCHE
  Company Number: JP-CHUGAI-2024022192

PATIENT
  Sex: Female
  Weight: 1.33 kg

DRUGS (2)
  1. CELLCEPT [Suspect]
     Active Substance: MYCOPHENOLATE MOFETIL
     Indication: Nephrotic syndrome
     Route: 064
  2. TELMISARTAN [Concomitant]
     Active Substance: TELMISARTAN
     Indication: Nephrotic syndrome
     Dosage: 20 MG/DAY
     Route: 064

REACTIONS (5)
  - Teratogenicity [Unknown]
  - Mayer-Rokitansky-Kuster-Hauser syndrome [Unknown]
  - Hepatic function abnormal [Fatal]
  - Gastrointestinal haemorrhage [Fatal]
  - Foetal exposure during pregnancy [Unknown]
